FAERS Safety Report 21232872 (Version 2)
Quarter: 2022Q4

REPORT INFORMATION
  Report Type: Report from Study
  Country: TR (occurrence: TR)
  Receive Date: 20220819
  Receipt Date: 20221028
  Transmission Date: 20230112
  Serious: Yes (Life-Threatening)
  Sender: FDA-Public Use
  Company Number: TR-JNJFOC-20220823271

PATIENT
  Age: 56 Year
  Sex: Female
  Weight: 64 kg

DRUGS (9)
  1. MACITENTAN [Suspect]
     Active Substance: MACITENTAN
     Indication: Pulmonary arterial hypertension
     Route: 048
     Dates: start: 20220412, end: 20220512
  2. MACITENTAN [Suspect]
     Active Substance: MACITENTAN
     Route: 048
     Dates: start: 20220513, end: 20220606
  3. MACITENTAN [Suspect]
     Active Substance: MACITENTAN
     Route: 048
     Dates: start: 20220607, end: 20220808
  4. SYMBICORT [Concomitant]
     Active Substance: BUDESONIDE\FORMOTEROL FUMARATE DIHYDRATE
     Indication: Dyspnoea
     Dosage: 160/4.5
     Route: 055
     Dates: start: 20160101
  5. DEPARTON [Concomitant]
     Indication: Pulmonary arterial hypertension
     Route: 048
     Dates: start: 20190308
  6. UPTRAVI [Concomitant]
     Active Substance: SELEXIPAG
     Indication: Pulmonary arterial hypertension
     Route: 048
     Dates: start: 20200626
  7. FUROSEMIDE [Concomitant]
     Active Substance: FUROSEMIDE
     Indication: Diuretic therapy
     Route: 048
     Dates: start: 20211214, end: 20220807
  8. CALCIMAX D3 [CALCIUM CARBONATE;COLECALCIFEROL] [Concomitant]
     Indication: Prophylaxis
     Route: 048
     Dates: start: 20220119
  9. OPSUMIT [Concomitant]
     Active Substance: MACITENTAN
     Indication: Pulmonary arterial hypertension
     Route: 048
     Dates: start: 20220809

REACTIONS (1)
  - Generalised oedema [Not Recovered/Not Resolved]

NARRATIVE: CASE EVENT DATE: 20220808
